FAERS Safety Report 9387125 (Version 1)
Quarter: 2013Q3

REPORT INFORMATION
  Report Type: Spontaneous
  Country: US (occurrence: None)
  Receive Date: 20130703
  Receipt Date: 20130703
  Transmission Date: 20140515
  Serious: Yes (Other)
  Sender: FDA-Public Use
  Company Number: None

PATIENT
  Age: 65 Year
  Sex: Male
  Weight: 63.5 kg

DRUGS (11)
  1. SALINE [Suspect]
  2. BUPIVACAINE [Suspect]
  3. OMNIPAQUE [Suspect]
  4. OMNISCAN [Suspect]
  5. PREDNISONE [Concomitant]
  6. SYNTHROID [Concomitant]
  7. LOSARTAN [Concomitant]
  8. VITAMIN D [Concomitant]
  9. OMEGA 3 [Concomitant]
  10. CALCIUM [Concomitant]
  11. 1 ADAY ADULT MENS VITAMIN [Concomitant]

REACTIONS (4)
  - Musculoskeletal stiffness [None]
  - Pain [None]
  - Musculoskeletal stiffness [None]
  - Neck pain [None]
